FAERS Safety Report 6213790-2 (Version None)
Quarter: 2009Q2

REPORT INFORMATION
  Report Type: 
  Country: None (occurrence: None)
  Receive Date: 20090602
  Receipt Date: 20090526
  Transmission Date: 20091009
  Serious: Yes (Hospitalization)
  Sender: FDA-Public Use
  Company Number: 2009005968

PATIENT
  Age: 65 Year
  Sex: Male
  Weight: 86.1 kg

DRUGS (2)
  1. TRISENOX [Suspect]
     Indication: MYELOFIBROSIS
     Dosage: 20 MG (20 MG, 1 IN 1 D), INTRAVENOUS
     Route: 042
     Dates: start: 20090331
  2. CYTARABINE [Suspect]
     Indication: MYELOFIBROSIS
     Dosage: 40 MG (20 MG, 2 IN 1 D), SUBCUTANEOUS
     Route: 058
     Dates: start: 20090331

REACTIONS (2)
  - FEBRILE NEUTROPENIA [None]
  - PNEUMONIA [None]
